FAERS Safety Report 11513376 (Version 1)
Quarter: 2015Q3

REPORT INFORMATION
  Report Type: Spontaneous
  Country: US (occurrence: None)
  Receive Date: 20150915
  Receipt Date: 20150915
  Transmission Date: 20151125
  Serious: No
  Sender: FDA-Public Use
  Company Number: None

PATIENT
  Age: 42 Year
  Sex: Female
  Weight: 106.6 kg

DRUGS (7)
  1. VITAMIN D [Concomitant]
     Active Substance: CHOLECALCIFEROL
  2. BACLOFEN. [Concomitant]
     Active Substance: BACLOFEN
  3. CONTRAVE [Suspect]
     Active Substance: BUPROPION HYDROCHLORIDE\NALTREXONE HYDROCHLORIDE
     Indication: WEIGHT DECREASED
     Dosage: 2 PILLS
     Route: 048
     Dates: start: 20150601, end: 20150914
  4. ESTRACE [Concomitant]
     Active Substance: ESTRADIOL
  5. MULTI-VITAMIN [Concomitant]
     Active Substance: .ALPHA.-TOCOPHEROL ACETATE, DL-\ASCORBIC ACID\CYANOCOBALAMIN\FLUORIDE ION\FOLIC ACID\NIACIN\PYRIDOXINE\RIBOFLAVIN\THIAMINE\VITAMIN A\VITAMIN D
  6. COPAXONE [Concomitant]
     Active Substance: GLATIRAMER ACETATE
  7. NUVIGIL [Concomitant]
     Active Substance: ARMODAFINIL

REACTIONS (3)
  - Crying [None]
  - Hot flush [None]
  - Depression [None]

NARRATIVE: CASE EVENT DATE: 20150914
